FAERS Safety Report 10157195 (Version 1)
Quarter: 2014Q2

REPORT INFORMATION
  Report Type: Spontaneous
  Country: US (occurrence: US)
  Receive Date: 20140507
  Receipt Date: 20140507
  Transmission Date: 20141212
  Serious: Yes (Other)
  Sender: FDA-Public Use
  Company Number: US-ASTRAZENECA-2014SE29713

PATIENT
  Age: 87 Year
  Sex: Male

DRUGS (2)
  1. NEXIUM [Suspect]
     Dosage: THREE TIMES A DAY
     Route: 048
  2. NEXIUM [Suspect]
     Dosage: ONE TIMES A DAY
     Route: 048

REACTIONS (2)
  - Hip fracture [Unknown]
  - Fall [Unknown]
